FAERS Safety Report 8241881-3 (Version None)
Quarter: 2012Q1

REPORT INFORMATION
  Report Type: 
  Country: None (occurrence: None)
  Receive Date: 20120328
  Receipt Date: 20120316
  Transmission Date: 20120608
  Serious: Yes (Death)
  Sender: FDA-Public Use
  Company Number: ES-ACTELION-A-CH2012-62392

PATIENT
  Age: 9 Year
  Sex: Male

DRUGS (1)
  1. ZAVESCA [Suspect]
     Indication: NIEMANN-PICK DISEASE
     Dosage: 30 MG, TID
     Route: 048
     Dates: start: 20071026

REACTIONS (2)
  - NIEMANN-PICK DISEASE [None]
  - CONDITION AGGRAVATED [None]
